FAERS Safety Report 19955247 (Version 1)
Quarter: 2021Q4

REPORT INFORMATION
  Report Type: Spontaneous
  Country: FR (occurrence: FR)
  Receive Date: 20211014
  Receipt Date: 20211014
  Transmission Date: 20220303
  Serious: Yes (Hospitalization)
  Sender: FDA-Public Use
  Company Number: None

PATIENT
  Age: 16 Year
  Sex: Male

DRUGS (4)
  1. XANAX [Suspect]
     Active Substance: ALPRAZOLAM
     Dosage: UNK
     Route: 048
     Dates: start: 2018
  2. RIVOTRIL [Suspect]
     Active Substance: CLONAZEPAM
     Dosage: UNK
     Route: 048
     Dates: start: 2018
  3. ZOPICLONE [Suspect]
     Active Substance: ZOPICLONE
     Dosage: ^SEVERAL TABLETS WITH TRAMADOL^
     Route: 048
     Dates: start: 2021
  4. TRAMADOL HYDROCHLORIDE [Suspect]
     Active Substance: TRAMADOL HYDROCHLORIDE
     Dosage: SEVERAL ^TABLETS^ DAILY
     Route: 048
     Dates: start: 2017

REACTIONS (2)
  - Intentional product misuse [Recovering/Resolving]
  - Substance use disorder [Recovering/Resolving]

NARRATIVE: CASE EVENT DATE: 20170101
